FAERS Safety Report 7703751-6 (Version None)
Quarter: 2011Q3

REPORT INFORMATION
  Report Type: 
  Country: None (occurrence: None)
  Receive Date: 20110823
  Receipt Date: 20110815
  Transmission Date: 20111222
  Serious: Yes (Hospitalization)
  Sender: FDA-Public Use
  Company Number: GB-TEVA-296703ISR

PATIENT
  Age: 35 Year
  Sex: Male

DRUGS (3)
  1. GLIMEPIRIDE [Suspect]
     Dosage: 4 MILLIGRAM;
     Route: 048
  2. RAMIPRIL [Suspect]
     Dosage: 10 MILLIGRAM;
     Route: 048
  3. METFORMIN HCL [Suspect]
     Dosage: 2 GRAM;
     Route: 048

REACTIONS (2)
  - HYPOGLYCAEMIA [None]
  - RENAL FAILURE ACUTE [None]
